FAERS Safety Report 9988844 (Version 1)
Quarter: 2014Q1

REPORT INFORMATION
  Report Type: Spontaneous
  Country: US (occurrence: US)
  Receive Date: 20140310
  Receipt Date: 20140310
  Transmission Date: 20141002
  Serious: Yes (Hospitalization)
  Sender: FDA-Public Use
  Company Number: US-SA-2014SA020746

PATIENT
  Age: 76 Year
  Sex: Male
  Weight: 101.6 kg

DRUGS (3)
  1. LANTUS [Suspect]
     Indication: TYPE 2 DIABETES MELLITUS
     Route: 065
     Dates: start: 20131101, end: 20131105
  2. METFORMIN [Concomitant]
  3. SYNTHROID [Concomitant]
     Indication: HYPOTHYROIDISM
     Dates: start: 1996

REACTIONS (8)
  - Adverse event [Unknown]
  - Blood thyroid stimulating hormone increased [Unknown]
  - Local swelling [Not Recovered/Not Resolved]
  - Glycosylated haemoglobin increased [Unknown]
  - Blood glucose increased [Recovering/Resolving]
  - Drug ineffective [Unknown]
  - Expired drug administered [Unknown]
  - Incorrect product storage [Unknown]
